FAERS Safety Report 7632564-9 (Version None)
Quarter: 2011Q3

REPORT INFORMATION
  Report Type: 
  Country: None (occurrence: None)
  Receive Date: 20110725
  Receipt Date: 20101014
  Transmission Date: 20111222
  Serious: No
  Sender: FDA-Public Use
  Company Number: US-BRISTOL-MYERS SQUIBB COMPANY-15334675

PATIENT
  Age: 82 Year
  Sex: Female

DRUGS (10)
  1. BENICAR [Concomitant]
  2. CALCIUM CARBONATE [Concomitant]
  3. COUMADIN [Suspect]
     Dates: start: 20100601
  4. ASCORBIC ACID [Concomitant]
  5. ZOCOR [Concomitant]
  6. PROTONIX [Concomitant]
  7. QVAR 40 [Concomitant]
  8. VITAMIN D [Concomitant]
  9. GLUCOSAMINE [Concomitant]
  10. ALBUTEROL SULFATE AUTOHALER [Concomitant]

REACTIONS (1)
  - ALOPECIA [None]
